FAERS Safety Report 4399265-4 (Version None)
Quarter: 2004Q3

REPORT INFORMATION
  Report Type: 
  Country: None (occurrence: None)
  Receive Date: 20040712
  Receipt Date: 20040621
  Transmission Date: 20050211
  Serious: Yes (Other)
  Sender: FDA-Public Use
  Company Number: USA040669231

PATIENT
  Age: 75 Year
  Sex: Female
  Weight: 76 kg

DRUGS (12)
  1. FORTEO [Suspect]
     Indication: OSTEOPOROSIS
     Dosage: 20 UG/1 DAY
     Dates: start: 20040506, end: 20040530
  2. FORTEO [Suspect]
     Indication: SPINAL FRACTURE
     Dosage: 20 UG/1 DAY
     Dates: start: 20040506, end: 20040530
  3. DARVOCET-N 100 [Concomitant]
  4. MAXZIDE [Concomitant]
  5. NORVASC [Concomitant]
  6. AMBIEN [Concomitant]
  7. ADVAIR DISKUS 100/50 [Concomitant]
  8. COZAAR [Concomitant]
  9. MIACALCIN [Concomitant]
  10. PEPCID [Concomitant]
  11. PANCREASE (PANCRELIPASE) [Concomitant]
  12. VALIUM [Concomitant]

REACTIONS (2)
  - OEDEMA PERIPHERAL [None]
  - PITTING OEDEMA [None]
